FAERS Safety Report 16041350 (Version 1)
Quarter: 2019Q1

REPORT INFORMATION
  Report Type: Spontaneous
  Country: US (occurrence: US)
  Receive Date: 20190306
  Receipt Date: 20190306
  Transmission Date: 20190418
  Serious: No
  Sender: FDA-Public Use
  Company Number: US-AKORN PHARMACEUTICALS-2018AKN01946

PATIENT
  Age: 31 Year
  Sex: Female
  Weight: 70.3 kg

DRUGS (10)
  1. REMICADE [Concomitant]
     Active Substance: INFLIXIMAB
  2. CLARITIN [Concomitant]
     Active Substance: LORATADINE
  3. BIOTIN [Concomitant]
     Active Substance: BIOTIN
  4. VITAMIN D [Concomitant]
     Active Substance: CHOLECALCIFEROL
  5. MYORISAN [Suspect]
     Active Substance: ISOTRETINOIN
     Dosage: 80 MG, 1X/DAY
     Dates: start: 20180816, end: 20181017
  6. CRYSELLE [Concomitant]
     Active Substance: ETHINYL ESTRADIOL\NORGESTREL
  7. PRILOSEC [Concomitant]
     Active Substance: OMEPRAZOLE MAGNESIUM
  8. MYORISAN [Suspect]
     Active Substance: ISOTRETINOIN
     Indication: ACNE
     Dosage: 40 MG, 1X/DAY
     Dates: start: 20180713, end: 20180816
  9. MULTIVITAMIN [Concomitant]
     Active Substance: VITAMINS
  10. FOLIC ACID. [Concomitant]
     Active Substance: FOLIC ACID

REACTIONS (10)
  - Diarrhoea [Recovered/Resolved]
  - Dry eye [Recovered/Resolved]
  - Arthralgia [Recovered/Resolved]
  - Epistaxis [Recovered/Resolved]
  - Nausea [Recovered/Resolved]
  - Dry skin [Recovered/Resolved]
  - Off label use [Recovered/Resolved]
  - Chapped lips [Recovered/Resolved]
  - Headache [Recovered/Resolved]
  - Alopecia [Recovered/Resolved]

NARRATIVE: CASE EVENT DATE: 2018
